FAERS Safety Report 13110287 (Version 1)
Quarter: 2017Q1

REPORT INFORMATION
  Report Type: Spontaneous
  Country: US (occurrence: US)
  Receive Date: 20170112
  Receipt Date: 20170112
  Transmission Date: 20170428
  Serious: Yes (Other)
  Sender: FDA-Public Use
  Company Number: US-ROCHE-1100504

PATIENT
  Sex: Male

DRUGS (10)
  1. ACTIVASE [Suspect]
     Active Substance: ALTEPLASE
     Indication: HYPERLIPIDAEMIA
     Route: 065
  2. NITROGLYCERINE [Concomitant]
     Active Substance: NITROGLYCERIN
     Dosage: 1/150
     Route: 060
  3. HEPARIN [Concomitant]
     Active Substance: HEPARIN SODIUM
     Dosage: 5000 UNITS
     Route: 042
  4. ACTIVASE [Suspect]
     Active Substance: ALTEPLASE
     Indication: ACUTE MYOCARDIAL INFARCTION
     Route: 042
     Dates: start: 19890309
  5. LIDOCAINE. [Concomitant]
     Active Substance: LIDOCAINE
     Dosage: 26 M C 2 MG
     Route: 041
  6. PROCARDIA [Concomitant]
     Active Substance: NIFEDIPINE
     Route: 060
     Dates: start: 19890309
  7. LIDOCAINE. [Concomitant]
     Active Substance: LIDOCAINE
     Route: 040
     Dates: start: 19890309
  8. ACTIVASE [Suspect]
     Active Substance: ALTEPLASE
     Route: 065
  9. PROCARDIA [Concomitant]
     Active Substance: NIFEDIPINE
     Route: 060
     Dates: start: 19890309
  10. HEPARIN [Concomitant]
     Active Substance: HEPARIN SODIUM
     Dosage: 25000 UNITS IN 500 CC D5W AT 1000 UNITS
     Route: 041

REACTIONS (1)
  - Reperfusion arrhythmia [Unknown]
